FAERS Safety Report 7738762-8 (Version None)
Quarter: 2011Q3

REPORT INFORMATION
  Report Type: 
  Country: None (occurrence: None)
  Receive Date: 20110908
  Receipt Date: 20110829
  Transmission Date: 20111222
  Serious: Yes (Hospitalization)
  Sender: FDA-Public Use
  Company Number: US-RB-031910-11

PATIENT
  Sex: Female

DRUGS (3)
  1. SUBOXONE [Suspect]
     Indication: DRUG DEPENDENCE
     Route: 064
     Dates: start: 20100701, end: 20100920
  2. SUBUTEX [Suspect]
     Indication: DRUG DEPENDENCE
     Route: 064
     Dates: start: 20100921, end: 20100101
  3. SUBUTEX [Suspect]
     Dosage: TAPERING DOSE TO 4 MG DAILY
     Route: 064
     Dates: start: 20100101, end: 20110321

REACTIONS (2)
  - HOSPITALISATION [None]
  - MATERNAL EXPOSURE DURING PREGNANCY [None]
